FAERS Safety Report 24703380 (Version 1)
Quarter: 2024Q4

REPORT INFORMATION
  Report Type: Spontaneous
  Country: US (occurrence: US)
  Receive Date: 20241205
  Receipt Date: 20241205
  Transmission Date: 20250114
  Serious: No
  Sender: SANDOZ
  Company Number: US-SANDOZ-SDZ2024US100257

PATIENT
  Sex: Female

DRUGS (2)
  1. CARVEDILOL [Suspect]
     Active Substance: CARVEDILOL
     Indication: Hypertension
     Dosage: UNK
     Route: 065
  2. ENTRESTO [Suspect]
     Active Substance: SACUBITRIL\VALSARTAN
     Indication: Product used for unknown indication
     Dosage: 4951 MG, BID
     Route: 048
     Dates: start: 202206

REACTIONS (6)
  - Malaise [Unknown]
  - Hypotension [Unknown]
  - Wrong product administered [Unknown]
  - Extra dose administered [Unknown]
  - Product label on wrong product [Unknown]
  - Product dose omission in error [Unknown]
